FAERS Safety Report 6911868-9 (Version None)
Quarter: 2010Q3

REPORT INFORMATION
  Report Type: 
  Country: None (occurrence: None)
  Receive Date: 20100806
  Receipt Date: 20071226
  Transmission Date: 20110219
  Serious: No
  Sender: FDA-Public Use
  Company Number: US-PFIZER INC-2007077248

PATIENT
  Sex: Female
  Weight: 70.454 kg

DRUGS (7)
  1. DETROL LA [Suspect]
     Indication: INCONTINENCE
  2. ALL OTHER NON-THERAPEUTIC PRODUCTS [Suspect]
  3. LEVOXYL [Concomitant]
  4. CALTRATE + D [Concomitant]
  5. MULTI-VITAMINS [Concomitant]
  6. FISH OIL [Concomitant]
  7. ACETYLSALICYLIC ACID SRT [Concomitant]

REACTIONS (5)
  - DRY SKIN [None]
  - HAIR TEXTURE ABNORMAL [None]
  - PRURITUS [None]
  - SKIN BURNING SENSATION [None]
  - TRICHORRHEXIS [None]
